FAERS Safety Report 19815427 (Version 3)
Quarter: 2021Q4

REPORT INFORMATION
  Report Type: Report from Study
  Country: BE (occurrence: BE)
  Receive Date: 20210909
  Receipt Date: 20211006
  Transmission Date: 20220304
  Serious: Yes (Hospitalization)
  Sender: FDA-Public Use
  Company Number: BE-ROCHE-2684805

PATIENT
  Age: 78 Year
  Sex: Female
  Weight: 44.9 kg

DRUGS (54)
  1. ETOPOSIDE [Suspect]
     Active Substance: ETOPOSIDE
     Indication: Small cell lung cancer extensive stage
     Dosage: UNK
     Route: 065
  2. ETOPOSIDE [Suspect]
     Active Substance: ETOPOSIDE
     Dosage: 110 MILLIGRAM
     Route: 065
     Dates: start: 20200831
  3. ATEZOLIZUMAB [Suspect]
     Active Substance: ATEZOLIZUMAB
     Indication: Small cell lung cancer extensive stage
     Dosage: ON 30/SEP/2020, 23/OCT/2020, 12/NOV/2020 AND 03/DEC/2020
     Route: 042
     Dates: start: 20200831
  4. CARBOPLATIN [Suspect]
     Active Substance: CARBOPLATIN
     Indication: Small cell lung cancer extensive stage
     Dosage: 178 MILLIGRAM
     Route: 065
     Dates: start: 20200831
  5. DEXTROSE [Concomitant]
     Active Substance: DEXTROSE
     Indication: Febrile neutropenia
     Dosage: UNK
     Dates: start: 20200810, end: 20200814
  6. MEDROL [Concomitant]
     Active Substance: METHYLPREDNISOLONE
     Indication: Prophylaxis
     Dosage: UNK
     Dates: start: 20200819
  7. MEDROL [Concomitant]
     Active Substance: METHYLPREDNISOLONE
     Dosage: UNK
     Dates: start: 20200714
  8. MEDROL [Concomitant]
     Active Substance: METHYLPREDNISOLONE
     Dosage: UNK
     Dates: start: 20200812, end: 20200818
  9. ACETYLCYSTEINE [Concomitant]
     Active Substance: ACETYLCYSTEINE
     Dosage: UNK
     Dates: start: 20200730, end: 20200805
  10. ACETYLCYSTEINE [Concomitant]
     Active Substance: ACETYLCYSTEINE
     Dosage: UNK
     Dates: start: 20200922
  11. PYRIDOXINE [Concomitant]
     Active Substance: PYRIDOXINE
     Indication: Prophylaxis
     Dosage: UNK
     Dates: start: 202008
  12. CRESTOR [Concomitant]
     Active Substance: ROSUVASTATIN CALCIUM
     Indication: Hypercholesterolaemia
     Dosage: UNK
  13. COVID-19 VACCINE MRNA [Concomitant]
     Dosage: UNK, START DATE: 21-JAN-2021
     Dates: end: 20210121
  14. COVID-19 VACCINE MRNA [Concomitant]
     Dosage: UNK, START DATE: 11-FEB-2021
     Dates: end: 20210211
  15. BUTYLSCOPOLAMINE BROMIDE [Concomitant]
     Active Substance: BUTYLSCOPOLAMINE BROMIDE
     Dosage: UNK
     Dates: start: 20200906
  16. ACETAMINOPHEN [Concomitant]
     Active Substance: ACETAMINOPHEN
     Indication: Febrile neutropenia
     Dosage: UNK
     Dates: start: 20200806, end: 20200806
  17. ACETAMINOPHEN [Concomitant]
     Active Substance: ACETAMINOPHEN
     Indication: Central venous catheterisation
     Dosage: UNK
     Dates: start: 20200928, end: 20200929
  18. AVELOX [Concomitant]
     Active Substance: MOXIFLOXACIN HYDROCHLORIDE
     Dosage: UNK, START DATE: 20-SEP-2020
     Dates: end: 20200924
  19. COMBIVENT [Concomitant]
     Active Substance: ALBUTEROL SULFATE\IPRATROPIUM BROMIDE
     Indication: Chronic obstructive pulmonary disease
     Dosage: UNK
  20. AKYNZEO [Concomitant]
     Active Substance: NETUPITANT\PALONOSETRON HYDROCHLORIDE
     Indication: Prophylaxis
     Dosage: UNK
     Dates: start: 20200729
  21. POTASSIUM CHLORIDE [Concomitant]
     Active Substance: POTASSIUM CHLORIDE
     Indication: Febrile neutropenia
     Dosage: UNK
     Dates: start: 20200810, end: 20200810
  22. PANTOPRAZOLE SODIUM [Concomitant]
     Active Substance: PANTOPRAZOLE SODIUM
     Dosage: UNK
     Dates: start: 20200717
  23. AZITHROMYCIN ANHYDROUS [Concomitant]
     Active Substance: AZITHROMYCIN ANHYDROUS
     Dosage: UNK, START DATE: 02-OCT-2020
  24. BECLOMETHASONE DIPROPIONATE\FORMOTEROL FUMARATE\GLYCOPYRROLATE [Concomitant]
     Active Substance: BECLOMETHASONE DIPROPIONATE\FORMOTEROL FUMARATE\GLYCOPYRROLATE
     Indication: Chronic obstructive pulmonary disease
     Dosage: UNK
  25. ULTRA MAGNESIUM [Concomitant]
     Indication: Prophylaxis
     Dosage: UNK
     Dates: start: 20200730
  26. CEFTAZIDIME [Concomitant]
     Active Substance: CEFTAZIDIME
     Indication: Febrile neutropenia
     Dosage: UNK
     Dates: start: 20200806, end: 20200812
  27. EXFORGE [Concomitant]
     Active Substance: AMLODIPINE BESYLATE\VALSARTAN
     Indication: Hypertension
     Dosage: UNK
  28. LASIX [Concomitant]
     Active Substance: FUROSEMIDE
     Dosage: UNK, START DATE: 23-SEP-2020
  29. BUPRENORPHINE [Concomitant]
     Active Substance: BUPRENORPHINE
     Dosage: UNK
  30. MELOXICAM [Concomitant]
     Active Substance: MELOXICAM
     Dosage: UNK
  31. ALIZAPRIDE [Concomitant]
     Active Substance: ALIZAPRIDE
     Dosage: UNK
     Dates: start: 202007
  32. BUMETANIDE [Concomitant]
     Active Substance: BUMETANIDE
     Dosage: UNK
     Dates: start: 20200730, end: 20200731
  33. MOVICOL [Concomitant]
     Active Substance: POLYETHYLENE GLYCOL 3350\POTASSIUM CHLORIDE\SODIUM BICARBONATE\SODIUM CHLORIDE
     Dosage: UNK
     Dates: start: 20200729
  34. ALPRAZOLAM [Concomitant]
     Active Substance: ALPRAZOLAM
     Indication: Prophylaxis
     Dosage: UNK
  35. CARBOPLATIN [Concomitant]
     Active Substance: CARBOPLATIN
     Dosage: UNK
  36. PLASMALYTE A [Concomitant]
     Indication: Febrile neutropenia
     Dosage: UNK
     Dates: start: 20200806, end: 20200807
  37. PLASMALYTE A [Concomitant]
     Dosage: UNK
     Dates: start: 20200806, end: 20200810
  38. ZOLPIDEM [Concomitant]
     Active Substance: ZOLPIDEM TARTRATE
     Indication: Insomnia
     Dosage: UNK
  39. NICOTINAMIDE [Concomitant]
     Active Substance: NIACINAMIDE
     Indication: Prophylaxis
     Dosage: UNK
     Dates: start: 202008
  40. NEULASTA [Concomitant]
     Active Substance: PEGFILGRASTIM
     Indication: Prophylaxis
     Dosage: UNK
     Dates: start: 20200731
  41. AZITHROMYCIN [Concomitant]
     Active Substance: AZITHROMYCIN
     Dosage: UNK, START  DATE: 02-OCT-2020
  42. GELATIN [Concomitant]
     Active Substance: GELATIN
     Indication: Prophylaxis
     Dosage: UNK
     Dates: start: 20200809, end: 20200814
  43. GELATIN [Concomitant]
     Active Substance: GELATIN
     Dosage: UNK
     Dates: start: 20201002, end: 202010
  44. HYALURONIDASE [Concomitant]
     Active Substance: HYALURONIDASE
     Dosage: UNK
     Dates: start: 20200831, end: 20200831
  45. GLUCION [Concomitant]
     Active Substance: ANHYDROUS DEXTROSE\LACTIC ACID\MAGNESIUM CHLORIDE\POTASSIUM CHLORIDE\POTASSIUM PHOSPHATE, MONOBASIC\
     Dosage: UNK
     Dates: start: 20200826, end: 20200828
  46. FOLIC ACID [Concomitant]
     Active Substance: FOLIC ACID
     Dosage: UNK
     Dates: start: 20200717
  47. ASPIRIN [Concomitant]
     Active Substance: ASPIRIN
     Indication: Arteriosclerosis coronary artery
     Dosage: UNK
  48. ASPIRIN [Concomitant]
     Active Substance: ASPIRIN
     Indication: Peripheral vascular disorder
  49. RIBOFLAVIN [Concomitant]
     Active Substance: RIBOFLAVIN
     Indication: Prophylaxis
     Dosage: UNK
     Dates: start: 202008
  50. LIDOCAINE HYDROCHLORIDE [Concomitant]
     Active Substance: LIDOCAINE HYDROCHLORIDE
     Dosage: UNK
     Dates: start: 20200831, end: 20200831
  51. SODIUM PICOSULFATE [Concomitant]
     Active Substance: SODIUM PICOSULFATE
     Dosage: UNK
     Dates: start: 20200902, end: 20200902
  52. ULTRA K [Concomitant]
     Dosage: UNK
     Dates: start: 20200808, end: 20200814
  53. ALDACTONE [Concomitant]
     Active Substance: SPIRONOLACTONE
     Dosage: UNK
     Dates: start: 20200811, end: 20200813
  54. SOLU-MEDROL [Concomitant]
     Active Substance: METHYLPREDNISOLONE SODIUM SUCCINATE
     Dosage: UNK
     Dates: start: 20200811, end: 20200811

REACTIONS (2)
  - Infective exacerbation of chronic obstructive airways disease [Recovered/Resolved]
  - Anaemia [Recovered/Resolved]

NARRATIVE: CASE EVENT DATE: 20200909
